FAERS Safety Report 14912120 (Version 1)
Quarter: 2018Q2

REPORT INFORMATION
  Report Type: Spontaneous
  Country: US (occurrence: US)
  Receive Date: 20180518
  Receipt Date: 20180518
  Transmission Date: 20180711
  Serious: No
  Sender: FDA-Public Use
  Company Number: US-PFIZER INC-2018204250

PATIENT
  Age: 54 Year
  Sex: Male
  Weight: 76 kg

DRUGS (1)
  1. DILANTIN [Suspect]
     Active Substance: PHENYTOIN
     Indication: SEIZURE
     Dosage: 300 MG, ONCE A DAY
     Route: 048

REACTIONS (2)
  - Tooth fracture [Unknown]
  - Tooth loss [Unknown]
